FAERS Safety Report 5918830-3 (Version None)
Quarter: 2008Q4

REPORT INFORMATION
  Report Type: 
  Country: None (occurrence: None)
  Receive Date: 20081015
  Receipt Date: 20081002
  Transmission Date: 20090506
  Serious: Yes (Hospitalization)
  Sender: FDA-Public Use
  Company Number: DE-AMGEN-US293958

PATIENT
  Sex: Male

DRUGS (2)
  1. ENBREL [Suspect]
     Indication: PSORIASIS
     Dosage: UNKNOWN
     Route: 058
  2. ISONIAZID [Suspect]
     Dosage: UNKNOWN
     Route: 048

REACTIONS (3)
  - COAGULOPATHY [None]
  - JAUNDICE [None]
  - LIVER DISORDER [None]
